FAERS Safety Report 9629426 (Version 1)
Quarter: 2013Q4

REPORT INFORMATION
  Report Type: Spontaneous
  Country: US (occurrence: US)
  Receive Date: 20131017
  Receipt Date: 20131017
  Transmission Date: 20140711
  Serious: No
  Sender: FDA-Public Use
  Company Number: US-ASTRAZENECA-2013SE62267

PATIENT
  Age: 52 Year
  Sex: Female
  Weight: 72.6 kg

DRUGS (6)
  1. NEXIUM [Suspect]
     Indication: DYSPEPSIA
     Route: 048
     Dates: start: 201307
  2. CRESTOR [Suspect]
     Indication: BLOOD CHOLESTEROL INCREASED
     Route: 048
     Dates: start: 201307, end: 201307
  3. CRESTOR [Suspect]
     Indication: BLOOD CHOLESTEROL INCREASED
     Dosage: BROKE HER 20 MG IN HALF AND ADMINISTERED ONE HALF IN THE MORNING AND OTHER HALF IN THE EVENING.
     Route: 048
  4. ZYRTEC OVER THE COUNTER [Concomitant]
     Indication: ALLERGY TO ANIMAL
  5. ZYRTEC OVER THE COUNTER [Concomitant]
     Indication: HYPERSENSITIVITY
  6. ZYRTEC OVER THE COUNTER [Concomitant]
     Indication: ALLERGY TO ANIMAL

REACTIONS (8)
  - Pain in extremity [Recovered/Resolved]
  - Muscle spasms [Recovered/Resolved]
  - Nervous system disorder [Unknown]
  - Stress [Unknown]
  - Feeling abnormal [Unknown]
  - Dysstasia [Unknown]
  - Myalgia [Recovered/Resolved]
  - Intentional drug misuse [Recovered/Resolved]
